FAERS Safety Report 4903695-9 (Version None)
Quarter: 2006Q1

REPORT INFORMATION
  Report Type: 
  Country: None (occurrence: None)
  Receive Date: 20060208
  Receipt Date: 20050211
  Transmission Date: 20060701
  Serious: Yes (Life-Threatening, Hospitalization, Other)
  Sender: FDA-Public Use
  Company Number: DE-ABBOTT-05P-062-0290456-00

PATIENT
  Sex: Female
  Weight: 100 kg

DRUGS (6)
  1. HUMIRA [Suspect]
     Indication: RHEUMATOID ARTHRITIS
     Route: 058
     Dates: start: 20031117, end: 20050101
  2. AZATHIOPRINE [Suspect]
     Indication: RHEUMATOID ARTHRITIS
     Route: 048
     Dates: start: 20041202, end: 20050105
  3. AZATHIOPRINE [Suspect]
     Indication: IRITIS
  4. METHOTREXATE SODIUM [Suspect]
     Indication: DRUG USE FOR UNKNOWN INDICATION
  5. NSAID'S [Suspect]
     Indication: DRUG USE FOR UNKNOWN INDICATION
  6. PREDNISOLONE [Concomitant]
     Indication: RHEUMATOID ARTHRITIS
     Route: 048
     Dates: start: 19740101, end: 20050101

REACTIONS (13)
  - CLOSTRIDIAL INFECTION [None]
  - COLITIS [None]
  - DECREASED APPETITE [None]
  - DIARRHOEA [None]
  - DISLOCATION OF JOINT PROSTHESIS [None]
  - DIZZINESS [None]
  - GASTROENTERITIS NORWALK VIRUS [None]
  - HYPEROSMOLAR STATE [None]
  - ILEUS PARALYTIC [None]
  - PNEUMONIA [None]
  - RENAL FAILURE ACUTE [None]
  - SHOCK [None]
  - UROSEPSIS [None]
